FAERS Safety Report 20796565 (Version 1)
Quarter: 2022Q2

REPORT INFORMATION
  Report Type: Spontaneous
  Country: DE (occurrence: DE)
  Receive Date: 20220506
  Receipt Date: 20220506
  Transmission Date: 20220720
  Serious: Yes (Other)
  Sender: FDA-Public Use
  Company Number: DE-AstraZeneca-2022A158708

PATIENT
  Sex: Male

DRUGS (1)
  1. ACLIDINIUM BROMIDE [Suspect]
     Active Substance: ACLIDINIUM BROMIDE
     Indication: Product used for unknown indication
     Dosage: 322.0UG UNKNOWN
     Route: 055

REACTIONS (4)
  - Polyneuropathy [Unknown]
  - Dyspnoea [Unknown]
  - Dry skin [Unknown]
  - Nausea [Unknown]
